FAERS Safety Report 11540371 (Version 1)
Quarter: 2015Q3

REPORT INFORMATION
  Report Type: Spontaneous
  Country: US (occurrence: US)
  Receive Date: 20150923
  Receipt Date: 20150923
  Transmission Date: 20151125
  Serious: No
  Sender: FDA-Public Use
  Company Number: US-BEH-2014044665

PATIENT
  Age: 54 Year
  Sex: Female

DRUGS (4)
  1. IV PEPSID [Concomitant]
     Indication: PREMEDICATION
  2. SOLU-MEDROL [Concomitant]
     Active Substance: METHYLPREDNISOLONE SODIUM SUCCINATE
     Indication: PREMEDICATION
  3. BENADRYL [Concomitant]
     Active Substance: DIPHENHYDRAMINE HYDROCHLORIDE
     Indication: PREMEDICATION
  4. PRIVIGEN [Suspect]
     Active Substance: HUMAN IMMUNOGLOBULIN G
     Indication: IMMUNODEFICIENCY COMMON VARIABLE
     Dosage: START DATE: ??-JUL-2013 TO SEP-2014; DIVIDED INTO 3 DOSES OVER ONE WEEK

REACTIONS (4)
  - Eye swelling [Recovered/Resolved]
  - Wheezing [Recovered/Resolved]
  - Dyspnoea [Recovered/Resolved]
  - Pruritus [Recovered/Resolved]

NARRATIVE: CASE EVENT DATE: 201308
